FAERS Safety Report 12100164 (Version 3)
Quarter: 2016Q4

REPORT INFORMATION
  Report Type: Spontaneous
  Country: US (occurrence: US)
  Receive Date: 20160222
  Receipt Date: 20161208
  Transmission Date: 20170206
  Serious: Yes (Other)
  Sender: FDA-Public Use
  Company Number: US-PFIZER INC-2016098311

PATIENT
  Age: 87 Year
  Sex: Male
  Weight: 87.9 kg

DRUGS (43)
  1. TUMERIC [Concomitant]
     Active Substance: TURMERIC
     Indication: INFLAMMATION
     Dosage: UNK
     Dates: start: 2014
  2. LIDOCAINE. [Concomitant]
     Active Substance: LIDOCAINE
     Dosage: UNK (APPLY 1 PATCH DAILY 12 HOURS ON 12 HOURS OFF)
  3. FUROSEMIDE. [Concomitant]
     Active Substance: FUROSEMIDE
     Dosage: 40 MG, ONCE DAILY, IN THE MORNING
     Route: 048
     Dates: start: 2014
  4. ACETAMINOPHEN. [Concomitant]
     Active Substance: ACETAMINOPHEN
     Dosage: 650 MG, AS NEEDED (TAKE 1 TABLET TWICE A DAY AS NEEDED)
     Route: 048
  5. SERTRALINE HCL [Concomitant]
     Active Substance: SERTRALINE HYDROCHLORIDE
     Dosage: 100 MG, DAILY (TAKE 1 AND 1/2 TABLETS DAILY)
     Route: 048
  6. LOSARTAN. [Concomitant]
     Active Substance: LOSARTAN
     Indication: BLOOD PRESSURE ABNORMAL
     Dosage: 25 MG, 1X/DAY
     Route: 048
     Dates: start: 2007
  7. FISH OIL [Concomitant]
     Active Substance: FISH OIL
     Dosage: UNK
     Dates: start: 2007
  8. FUROSEMIDE. [Concomitant]
     Active Substance: FUROSEMIDE
     Indication: DIURETIC THERAPY
     Dosage: UNK
     Dates: start: 2007
  9. GABAPENTIN. [Concomitant]
     Active Substance: GABAPENTIN
     Dosage: 800 MG, DAILY
     Route: 048
  10. GABAPENTIN. [Concomitant]
     Active Substance: GABAPENTIN
     Dosage: UNK
     Dates: start: 2015, end: 201603
  11. LOSARTAN POTASSIUM. [Concomitant]
     Active Substance: LOSARTAN POTASSIUM
     Dosage: 25 MG, 1X/DAY
     Route: 048
  12. METFORMIN HCL [Concomitant]
     Active Substance: METFORMIN HYDROCHLORIDE
     Dosage: 1000 MG, 2X/DAY
     Route: 048
  13. STOOL SOFTENER (DOCUSATE CALCIUM) [Concomitant]
     Active Substance: DOCUSATE CALCIUM
     Dosage: 250 MG, 2X/DAY
     Route: 048
  14. EPLERENONE. [Concomitant]
     Active Substance: EPLERENONE
     Indication: BLOOD PRESSURE ABNORMAL
     Dosage: 25 MG ONCE DAILY, IN THE MORNING
     Route: 048
     Dates: start: 2007
  15. TYLENOL [Concomitant]
     Active Substance: ACETAMINOPHEN
     Dosage: UNK
     Dates: start: 1985
  16. ATORVASTATIN CALCIUM. [Concomitant]
     Active Substance: ATORVASTATIN CALCIUM
     Dosage: 20 MG, 1X/DAY (TAKE 1 TABLET EVERYDAY AT BEDTIME)
     Route: 048
  17. NYSTATIN/TRIAMCINOLONE [Concomitant]
     Active Substance: NYSTATIN\TRIAMCINOLONE
     Dosage: UNK UNK, 1X/DAY [NYSTATIN 100000 UNIT/GM]/[ TRIAMCINOLONE 0.1 %] APPLY TO AFFECTED AREA
  18. WARFARIN SODIUM. [Concomitant]
     Active Substance: WARFARIN SODIUM
     Dosage: 5 MG, 1X/DAY
     Route: 048
  19. REVATIO [Suspect]
     Active Substance: SILDENAFIL CITRATE
     Indication: PULMONARY ARTERIAL HYPERTENSION
     Dosage: 20 MG, 3X/DAY
     Route: 048
     Dates: start: 201503
  20. VITAMIN D3 [Concomitant]
     Active Substance: CHOLECALCIFEROL
     Dosage: 1000 UNITS, DAILY
     Route: 048
     Dates: start: 2013
  21. WARFARIN [Concomitant]
     Active Substance: WARFARIN
     Indication: ATRIAL FIBRILLATION
  22. METFORMIN [Concomitant]
     Active Substance: METFORMIN HYDROCHLORIDE
     Indication: GLUCOSE TOLERANCE IMPAIRED
     Dosage: 500 MG, ONCE DAILY, IN THE EVENING
     Route: 048
     Dates: start: 201502
  23. FLAXSEED [Concomitant]
     Active Substance: FLAX SEED
     Indication: INFLAMMATION
     Dosage: UNK
     Route: 048
     Dates: start: 2016
  24. TYLENOL [Concomitant]
     Active Substance: ACETAMINOPHEN
     Indication: HERPES ZOSTER
     Dosage: 1000 MG (TWO 500MG TABLETS), AS NEEDED
     Dates: start: 2014
  25. GABAPENTIN. [Concomitant]
     Active Substance: GABAPENTIN
     Indication: HERPES ZOSTER
     Dosage: 800 MG, 3X/DAY
     Route: 048
     Dates: start: 2014
  26. WARFARIN [Concomitant]
     Active Substance: WARFARIN
     Indication: ANTICOAGULANT THERAPY
     Dosage: 2.5 MG (5 MG), 1/2 TABLET EVERY DAY EXCEPT WEDNESDAY
     Route: 048
     Dates: start: 2007
  27. ZOLOFT [Concomitant]
     Active Substance: SERTRALINE HYDROCHLORIDE
     Indication: DEPRESSION
     Dosage: 100 MG, ONCE DAILY, IN THE EVENING
     Route: 048
     Dates: start: 1999
  28. TUMERIC [Concomitant]
     Active Substance: TURMERIC
     Dosage: 500 MG, 1X/DAY
     Route: 048
     Dates: start: 201502
  29. FLAXSEED [Concomitant]
     Active Substance: FLAX SEED
     Dosage: UNK
     Dates: start: 2015
  30. LIPITOR [Concomitant]
     Active Substance: ATORVASTATIN CALCIUM
     Indication: CARDIAC DISORDER
     Dosage: 5 MG, ONCE DAILY, AT NOON
     Route: 048
     Dates: start: 2004
  31. COQ 10 [Concomitant]
     Active Substance: UBIDECARENONE
     Indication: CARDIAC DISORDER
     Dosage: 100 MG, ONCE DAILY, AT NOON
     Route: 048
     Dates: start: 2004
  32. LIDOCAINE. [Concomitant]
     Active Substance: LIDOCAINE
     Indication: PAIN
     Dosage: APPLIED TO SKIN BETWEEN BACK AND BUTT IN THE EVENING
     Route: 061
     Dates: start: 2014
  33. FUROSEMIDE. [Concomitant]
     Active Substance: FUROSEMIDE
     Dosage: 40 MG, UNK (TAKE 1 TABLET ONE DAY, ALTERNATING WITH 2 THE NEXT DAY)
     Route: 048
  34. NYSTOP [Concomitant]
     Active Substance: NYSTATIN
     Dosage: UNK UNK, 2X/DAY (100000 UNIT/GM; APPLY ONE APPLICATION TWICE DAILY TO AFFECTED AREA)
  35. SOTALOL. [Concomitant]
     Active Substance: SOTALOL
     Dosage: 40 MG, 2X/DAY
     Route: 048
     Dates: start: 2007
  36. VITAMIN D3 [Concomitant]
     Active Substance: CHOLECALCIFEROL
     Indication: VITAMIN SUPPLEMENTATION
     Dosage: UNK
     Dates: start: 2010
  37. GINGER ROOT [Concomitant]
     Active Substance: GINGER
     Indication: INFLAMMATION
     Dosage: UNK
     Dates: start: 2014
  38. GINGER ROOT [Concomitant]
     Active Substance: GINGER
     Dosage: 550 MG, DAILY
     Route: 048
     Dates: start: 201502
  39. FISH OIL [Concomitant]
     Active Substance: FISH OIL
     Dosage: UNK, 1X/DAY
     Route: 048
     Dates: start: 2011, end: 2016
  40. MUCINEX [Concomitant]
     Active Substance: GUAIFENESIN
     Indication: CHRONIC OBSTRUCTIVE PULMONARY DISEASE
     Dosage: UNK
     Dates: start: 2012
  41. MUCINEX [Concomitant]
     Active Substance: GUAIFENESIN
     Dosage: 1200 MG, AS NEEDED
     Route: 048
     Dates: start: 201502
  42. MUCINEX [Concomitant]
     Active Substance: GUAIFENESIN
     Dosage: 600 MG, AS NEEDED (TAKE 1 TABLET ONCE A DAY AS NEEDED)
     Route: 048
  43. GABAPENTIN. [Concomitant]
     Active Substance: GABAPENTIN
     Dosage: 800 MG, 3X/DAY
     Route: 048

REACTIONS (4)
  - Pulmonary oedema [Not Recovered/Not Resolved]
  - Fluid retention [Not Recovered/Not Resolved]
  - Cardiac failure congestive [Not Recovered/Not Resolved]
  - Dyspnoea [Not Recovered/Not Resolved]

NARRATIVE: CASE EVENT DATE: 20160215
